FAERS Safety Report 10074137 (Version 1)
Quarter: 2014Q2

REPORT INFORMATION
  Report Type: Spontaneous
  Country: US (occurrence: US)
  Receive Date: 20140413
  Receipt Date: 20140413
  Transmission Date: 20141212
  Serious: Yes (Other)
  Sender: FDA-Public Use
  Company Number: US-AMGEN-USASP2014024692

PATIENT
  Age: 73 Year
  Sex: Female

DRUGS (4)
  1. SENSIPAR [Suspect]
     Indication: HYPERPARATHYROIDISM SECONDARY
     Dosage: 30 MG, QD
     Route: 065
     Dates: start: 2011
  2. CALCIUM ACETATE [Concomitant]
     Dosage: 667 MG, TWO PER MEAL
  3. WARFARIN [Concomitant]
  4. RENVELA [Concomitant]

REACTIONS (1)
  - Blood parathyroid hormone increased [Unknown]
